FAERS Safety Report 5074063-7 (Version None)
Quarter: 2006Q3

REPORT INFORMATION
  Report Type: 
  Country: None (occurrence: None)
  Receive Date: 20060808
  Receipt Date: 20021210
  Transmission Date: 20061208
  Serious: No
  Sender: FDA-Public Use
  Company Number: US-AMGEN-KDL024983

PATIENT
  Sex: Male
  Weight: 66.3 kg

DRUGS (4)
  1. PROCRIT [Suspect]
     Indication: RENAL FAILURE CHRONIC
     Route: 058
     Dates: start: 20021105, end: 20021202
  2. DITROPAN [Concomitant]
  3. NEURONTIN [Concomitant]
  4. VICODIN [Concomitant]

REACTIONS (3)
  - DIARRHOEA [None]
  - DRY SKIN [None]
  - INJECTION SITE REACTION [None]
